FAERS Safety Report 20567697 (Version 1)
Quarter: 2022Q1

REPORT INFORMATION
  Report Type: Spontaneous
  Country: DE (occurrence: None)
  Receive Date: 20220308
  Receipt Date: 20220308
  Transmission Date: 20220423
  Serious: Yes (Other)
  Sender: FDA-Public Use
  Company Number: 2022A095443

PATIENT
  Sex: Male

DRUGS (1)
  1. XIGDUO XR [Suspect]
     Active Substance: DAPAGLIFLOZIN PROPANEDIOL\METFORMIN HYDROCHLORIDE
     Indication: Type 2 diabetes mellitus
     Dosage: 5.0 / 1000.0
     Route: 048

REACTIONS (4)
  - Blood ketone body [Recovered/Resolved]
  - Blood glucose increased [Recovered/Resolved]
  - Fatigue [Recovered/Resolved]
  - Polyuria [Recovered/Resolved]
